FAERS Safety Report 5725459-9 (Version None)
Quarter: 2008Q2

REPORT INFORMATION
  Report Type: 
  Country: None (occurrence: None)
  Receive Date: 20080501
  Receipt Date: 20080425
  Transmission Date: 20081010
  Serious: Yes (Hospitalization)
  Sender: FDA-Public Use
  Company Number: US-ASTRAZENECA-2008UW08460

PATIENT
  Age: 608 Month
  Sex: Male
  Weight: 108.2 kg

DRUGS (5)
  1. AZD0530 [Suspect]
     Indication: PROSTATE CANCER
     Route: 048
     Dates: start: 20071119
  2. ASPIRIN [Concomitant]
  3. COLACE [Concomitant]
  4. LUPRON [Concomitant]
  5. SINGULAIR [Suspect]

REACTIONS (1)
  - HAEMOGLOBIN DECREASED [None]
